FAERS Safety Report 9073094 (Version 1)
Quarter: 2013Q1

REPORT INFORMATION
  Report Type: Report from Study
  Country: US (occurrence: US)
  Receive Date: 20130129
  Receipt Date: 20130129
  Transmission Date: 20140127
  Serious: Yes (Other)
  Sender: FDA-Public Use
  Company Number: US-ABBOTT-12P-163-0922822-00

PATIENT
  Age: 58 Year
  Sex: Male

DRUGS (7)
  1. HUMIRA 40 MG/0.8 ML PEN [Suspect]
     Indication: PSORIATIC ARTHROPATHY
     Dates: start: 20120306
  2. PREDNISONE [Concomitant]
     Indication: PRODUCT USED FOR UNKNOWN INDICATION
  3. PREDNISONE [Concomitant]
     Dates: start: 20120405
  4. NORVASC [Concomitant]
     Indication: BLOOD PRESSURE
  5. NORVASC [Concomitant]
  6. LISINOPRIL [Concomitant]
     Indication: BLOOD PRESSURE
  7. GABAPENTIN [Concomitant]
     Indication: PAIN

REACTIONS (8)
  - Dehydration [Not Recovered/Not Resolved]
  - Malaise [Recovering/Resolving]
  - Malaise [Recovering/Resolving]
  - Nausea [Recovering/Resolving]
  - Diarrhoea [Recovering/Resolving]
  - Hepatic enzyme increased [Unknown]
  - Influenza like illness [Unknown]
  - Pain in extremity [Unknown]
